FAERS Safety Report 7424043-9 (Version None)
Quarter: 2011Q2

REPORT INFORMATION
  Report Type: 
  Country: None (occurrence: None)
  Receive Date: 20110419
  Receipt Date: 20101215
  Transmission Date: 20111010
  Serious: Yes (Hospitalization)
  Sender: FDA-Public Use
  Company Number: US-BAYER-201024008NA

PATIENT
  Age: 33 Year
  Sex: Female
  Weight: 100 kg

DRUGS (25)
  1. YAZ [Suspect]
     Indication: PREMENSTRUAL SYNDROME
  2. NEXIUM [Concomitant]
     Indication: GASTROOESOPHAGEAL REFLUX DISEASE
     Dosage: 40 MG, QD
     Route: 048
     Dates: start: 20080530
  3. SINGULAIR [Concomitant]
     Indication: ASTHMA
     Dosage: 10 MG, QD
     Route: 048
     Dates: start: 20060424
  4. OCELLA [Suspect]
     Indication: PRODUCT USED FOR UNKNOWN INDICATION
     Dosage: UNK UNK, UNK
     Route: 048
     Dates: start: 20080101, end: 20091015
  5. RELPAX [Concomitant]
     Indication: MIGRAINE
     Route: 048
  6. PRAVACHOL [Concomitant]
     Indication: BLOOD CHOLESTEROL ABNORMAL
     Route: 048
  7. PAROXETINE [Concomitant]
     Dosage: 20 MG, QD
     Route: 048
     Dates: start: 20060425
  8. LAMICTAL [Concomitant]
     Indication: CONVULSION
     Dosage: 150 MG, UNK
     Route: 048
  9. EXCEDRIN (MIGRAINE) [Concomitant]
     Indication: MIGRAINE
     Route: 048
  10. HYDROCODONE BITARTRATE AND ACETAMINOPHEN [Concomitant]
     Dosage: UNK UNK, Q4HR
     Route: 048
     Dates: start: 20080324
  11. PROMETHAZINE [Concomitant]
     Indication: NAUSEA
     Dosage: 25 MG, UNK
     Route: 048
     Dates: start: 20080530
  12. HYDROCODONE BITARTRATE + IBUPROFEN [Concomitant]
     Indication: PAIN
     Dosage: UNK
     Route: 048
     Dates: start: 20080530
  13. PAXIL [Concomitant]
     Indication: ANXIETY
     Dosage: 20 MG, UNK
  14. PAXIL [Concomitant]
     Indication: DEPRESSION
  15. CALCIUM [CALCIUM] [Concomitant]
     Indication: SUPPLEMENTATION THERAPY
     Route: 048
  16. FISH OIL [Concomitant]
     Indication: SUPPLEMENTATION THERAPY
     Route: 048
  17. DICYCLOMINE [Concomitant]
     Dosage: 20 MG, UNK
     Route: 048
     Dates: start: 20080606
  18. YAZ [Suspect]
     Indication: ACNE
     Dosage: UNK UNK, UNK
     Route: 048
     Dates: start: 20070301, end: 20091101
  19. YAZ [Suspect]
  20. YASMIN [Suspect]
     Indication: PRODUCT USED FOR UNKNOWN INDICATION
     Dosage: UNK UNK, UNK
     Route: 048
     Dates: start: 20080101, end: 20091015
  21. BENTYL [Concomitant]
     Indication: PAIN
     Route: 048
  22. MULTI-VITAMINS [Concomitant]
     Indication: SUPPLEMENTATION THERAPY
     Route: 048
  23. LAMOTRIGINE [Concomitant]
     Dosage: 150 MG, BID
     Route: 048
     Dates: start: 20060324
  24. PRAVASTATIN [Concomitant]
     Dosage: 80 MG, QD
     Route: 048
     Dates: start: 20071221
  25. XENICAL [Concomitant]
     Dosage: 120 MG, BID
     Route: 048
     Dates: start: 20080124

REACTIONS (5)
  - CHOLECYSTITIS CHRONIC [None]
  - BILIARY DYSKINESIA [None]
  - NAUSEA [None]
  - GALLBLADDER CHOLESTEROLOSIS [None]
  - ABDOMINAL PAIN UPPER [None]
